FAERS Safety Report 8606332-5 (Version None)
Quarter: 2012Q3

REPORT INFORMATION
  Report Type: 
  Country: None (occurrence: None)
  Receive Date: 20120820
  Receipt Date: 20120814
  Transmission Date: 20120928
  Serious: Yes (Death, Other)
  Sender: FDA-Public Use
  Company Number: JP-ROCHE-1102871

PATIENT
  Sex: Male

DRUGS (12)
  1. MUCODYNE [Concomitant]
     Route: 048
     Dates: end: 20100917
  2. OMEPRAZOLE [Concomitant]
     Route: 048
     Dates: end: 20100917
  3. MOBIC [Concomitant]
     Route: 048
     Dates: end: 20100918
  4. AVASTIN [Suspect]
     Indication: LUNG ADENOCARCINOMA
     Route: 041
     Dates: start: 20100818, end: 20100818
  5. PACLITAXEL [Concomitant]
     Dosage: DOSAGE IS UNCERTAIN.
     Route: 041
     Dates: start: 20100908, end: 20100908
  6. CARBOPLATIN [Concomitant]
     Dosage: DOSAGE IS UNCERTAIN.
     Route: 041
     Dates: start: 20100908, end: 20100908
  7. CARBOPLATIN [Concomitant]
     Dates: end: 20090909
  8. PACLITAXEL [Concomitant]
     Indication: LUNG ADENOCARCINOMA
     Dosage: DOSAGE IS UNCERTAIN.
     Route: 041
     Dates: start: 20100818, end: 20100818
  9. HOKUNALIN [Concomitant]
     Route: 062
     Dates: end: 20100917
  10. AVASTIN [Suspect]
     Route: 041
     Dates: start: 20100908, end: 20100908
  11. CARBOPLATIN [Concomitant]
     Indication: LUNG ADENOCARCINOMA
     Dosage: DOSAGE IS UNCERTAIN.
     Route: 041
     Dates: start: 20100818, end: 20100818
  12. PACLITAXEL [Concomitant]
     Dates: end: 20090909

REACTIONS (2)
  - GENERAL PHYSICAL HEALTH DETERIORATION [None]
  - DEATH [None]
